FAERS Safety Report 10077824 (Version 1)
Quarter: 2014Q2

REPORT INFORMATION
  Report Type: Spontaneous
  Country: FR (occurrence: FR)
  Receive Date: 20140414
  Receipt Date: 20140414
  Transmission Date: 20141212
  Serious: Yes (Death, Hospitalization)
  Sender: FDA-Public Use
  Company Number: PHHY2014FR044710

PATIENT
  Age: 65 Year
  Sex: Female

DRUGS (6)
  1. NEORAL [Suspect]
     Indication: PROPHYLAXIS AGAINST TRANSPLANT REJECTION
     Dosage: 75 MG, BID
     Route: 048
     Dates: start: 1999, end: 201009
  2. NEORAL [Suspect]
     Dosage: 70 MG, BID
     Route: 048
     Dates: start: 201009
  3. CELLCEPT [Suspect]
     Indication: PROPHYLAXIS AGAINST TRANSPLANT REJECTION
     Dosage: 500 MG, TID
     Route: 048
     Dates: start: 1999, end: 200604
  4. CELLCEPT [Suspect]
     Dosage: 250 MG, BID
     Route: 048
     Dates: start: 200604, end: 201003
  5. CELLCEPT [Suspect]
     Dosage: 250 MG, BID
     Route: 048
     Dates: start: 201003, end: 201210
  6. CELLCEPT [Suspect]
     Dosage: 500 MG, BID
     Route: 048
     Dates: start: 201210

REACTIONS (2)
  - Lung neoplasm malignant [Fatal]
  - Squamous cell carcinoma of the tongue [Fatal]
